FAERS Safety Report 6979524-9 (Version None)
Quarter: 2010Q3

REPORT INFORMATION
  Report Type: 
  Country: None (occurrence: None)
  Receive Date: 20100910
  Receipt Date: 20100910
  Transmission Date: 20110219
  Serious: Yes (Life-Threatening, Other)
  Sender: FDA-Public Use
  Company Number: None

PATIENT
  Age: 78 Year
  Sex: Female
  Weight: 43.5453 kg

DRUGS (1)
  1. LABETALOL HCL [Suspect]

REACTIONS (2)
  - ABDOMINAL PAIN [None]
  - HYPERTENSIVE CRISIS [None]
